FAERS Safety Report 8934943 (Version 1)
Quarter: 2012Q4

REPORT INFORMATION
  Report Type: Report from Study
  Country: FR (occurrence: FR)
  Receive Date: 20121129
  Receipt Date: 20121129
  Transmission Date: 20130627
  Serious: Yes (Hospitalization)
  Sender: FDA-Public Use
  Company Number: FR-ROCHE-771568

PATIENT
  Age: 72 Year
  Sex: Male

DRUGS (9)
  1. RITUXIMAB [Suspect]
     Indication: CHRONIC LYMPHOCYTIC LEUKAEMIA
     Dosage: LAST DOSE PRIOR TO SAE ON 20 AUG 2009.
     Route: 042
  2. FLUDARABINE [Suspect]
     Indication: CHRONIC LYMPHOCYTIC LEUKAEMIA
     Dosage: LAST DOSE ADMINSTERED FROM 20 AUG 2009 TO 22 AUG 2009.
     Route: 065
  3. CYCLOPHOSPHAMIDE [Suspect]
     Indication: CHRONIC LYMPHOCYTIC LEUKAEMIA
     Dosage: LAST DOSE ADMINSTERED FROM 20 AUG 2009 TO 22 AUG 2009.
     Route: 065
     Dates: start: 20090820, end: 20090822
  4. ZELITREX [Concomitant]
     Route: 002
  5. PENTACARINAT [Concomitant]
     Dosage: PENTACARINATE
     Route: 065
  6. ZOXAN [Concomitant]
     Route: 065
  7. ATACAND [Concomitant]
     Route: 065
  8. INEXIUM [Concomitant]
     Route: 065
  9. CORDARONE [Concomitant]
     Route: 065

REACTIONS (2)
  - Refractory anaemia with an excess of blasts [Not Recovered/Not Resolved]
  - Pancytopenia [Not Recovered/Not Resolved]
